FAERS Safety Report 20457220 (Version 2)
Quarter: 2022Q1

REPORT INFORMATION
  Report Type: Report from Study
  Country: US (occurrence: US)
  Receive Date: 20220210
  Receipt Date: 20220211
  Transmission Date: 20220423
  Serious: Yes (Other)
  Sender: FDA-Public Use
  Company Number: US-BIOGEN-2021BI01077831

PATIENT
  Sex: Male

DRUGS (1)
  1. SPINRAZA [Suspect]
     Active Substance: NUSINERSEN
     Indication: Spinal muscular atrophy
     Dosage: PHYSICIAN TO ADMINISTER 12MG/5ML INTRATHECALLY ONCE EVERY 16 WEEKS.
     Route: 037

REACTIONS (4)
  - Spinal muscular atrophy [Unknown]
  - Prescribed underdose [Unknown]
  - Platelet count decreased [Unknown]
  - Urine leukocyte esterase positive [Unknown]
